FAERS Safety Report 11327914 (Version 1)
Quarter: 2015Q3

REPORT INFORMATION
  Report Type: Spontaneous
  Country: CH (occurrence: GB)
  Receive Date: 20150731
  Receipt Date: 20150731
  Transmission Date: 20151125
  Serious: Yes (Life-Threatening)
  Sender: FDA-Public Use
  Company Number: CH-LPDUSPRD-20150578

PATIENT
  Age: 36 Year
  Sex: Female
  Weight: 90 kg

DRUGS (5)
  1. FOLIC ACID. [Concomitant]
     Active Substance: FOLIC ACID
     Dosage: DOSE NOT PROVIDED
     Route: 065
  2. OMEPRAZOLE. [Concomitant]
     Active Substance: OMEPRAZOLE
     Dosage: DOSE NOT PROVIDED
     Route: 065
  3. FERINJECT [Suspect]
     Active Substance: FERRIC CARBOXYMALTOSE
     Dosage: 1 GM (1 IN 1 WEEK)
     Route: 041
     Dates: start: 20150702, end: 20150709
  4. GABAPENTIN. [Concomitant]
     Active Substance: GABAPENTIN
     Dosage: DOSE NOT PROVIDED
     Route: 065
  5. MELOXICAM. [Concomitant]
     Active Substance: MELOXICAM
     Dosage: DOSE NOT PROVIDED
     Route: 065

REACTIONS (12)
  - Circulatory collapse [Unknown]
  - Urinary incontinence [Unknown]
  - Cold sweat [Unknown]
  - Diarrhoea [Unknown]
  - Skin discolouration [Unknown]
  - Abdominal distension [Unknown]
  - Hyperhidrosis [Unknown]
  - Dizziness [Unknown]
  - Radial pulse abnormal [Unknown]
  - Paraesthesia [Unknown]
  - Abdominal pain [Unknown]
  - Vomiting [Unknown]

NARRATIVE: CASE EVENT DATE: 201507
